FAERS Safety Report 7118291-5 (Version None)
Quarter: 2010Q4

REPORT INFORMATION
  Report Type: 
  Country: None (occurrence: None)
  Receive Date: 20101123
  Receipt Date: 20101112
  Transmission Date: 20110411
  Serious: Yes (Hospitalization)
  Sender: FDA-Public Use
  Company Number: DE-BAYER-201046853GPV

PATIENT
  Age: 69 Year
  Sex: Male

DRUGS (10)
  1. SORAFENIB [Suspect]
     Indication: HEPATIC NEOPLASM MALIGNANT
     Dosage: TOTAL DAILY DOSE: 800 MG
     Route: 048
     Dates: start: 20100222, end: 20100315
  2. SORAFENIB [Suspect]
     Dosage: TOTAL DAILY DOSE: 800 MG
     Route: 048
     Dates: start: 20100323, end: 20100505
  3. SORAFENIB [Suspect]
     Dosage: TOTAL DAILY DOSE: 400 MG
     Route: 048
     Dates: start: 20100519, end: 20100628
  4. SORAFENIB [Suspect]
     Dosage: TOTAL DAILY DOSE: 400 MG
     Route: 048
     Dates: start: 20100714, end: 20101108
  5. ERLOTINIB HYDROCHLORIDE [Suspect]
     Indication: HEPATIC NEOPLASM MALIGNANT
     Route: 048
     Dates: start: 20100323, end: 20100504
  6. ERLOTINIB HYDROCHLORIDE [Suspect]
     Route: 048
     Dates: start: 20100222, end: 20100315
  7. ERLOTINIB HYDROCHLORIDE [Suspect]
     Route: 048
     Dates: start: 20100714, end: 20101108
  8. ERLOTINIB HYDROCHLORIDE [Suspect]
     Route: 048
     Dates: start: 20100519, end: 20100628
  9. ARIXTRA [Concomitant]
     Indication: PULMONARY EMBOLISM
     Route: 058
     Dates: start: 20100213
  10. IMODIUM [Concomitant]
     Indication: DIARRHOEA
     Route: 048
     Dates: start: 20100315

REACTIONS (1)
  - HAEMOTHORAX [None]
